APPROVED DRUG PRODUCT: GRISEOFULVIN
Active Ingredient: GRISEOFULVIN, MICROSIZE
Strength: 500MG
Dosage Form/Route: TABLET;ORAL
Application: A202482 | Product #001 | TE Code: AB
Applicant: SIGMAPHARM LABORATORIES LLC
Approved: Oct 22, 2012 | RLD: No | RS: No | Type: RX